FAERS Safety Report 23239266 (Version 2)
Quarter: 2024Q1

REPORT INFORMATION
  Report Type: Report from Study
  Country: US (occurrence: US)
  Receive Date: 20231129
  Receipt Date: 20240225
  Transmission Date: 20240410
  Serious: Yes (Other)
  Sender: FDA-Public Use
  Company Number: US-ABBVIE-5510570

PATIENT
  Sex: Male

DRUGS (1)
  1. SKYRIZI [Suspect]
     Active Substance: RISANKIZUMAB-RZAA
     Indication: Psoriasis
     Route: 058
     Dates: start: 20230510

REACTIONS (8)
  - Spinal operation [Unknown]
  - Spinal disorder [Unknown]
  - Psoriasis [Recovered/Resolved]
  - Back disorder [Unknown]
  - Pain [Unknown]
  - Surgical failure [Unknown]
  - Nerve compression [Unknown]
  - Spinal pain [Unknown]

NARRATIVE: CASE EVENT DATE: 20230101
